FAERS Safety Report 14305029 (Version 1)
Quarter: 2017Q4

REPORT INFORMATION
  Report Type: Spontaneous
  Country: JP (occurrence: JP)
  Receive Date: 20171219
  Receipt Date: 20171219
  Transmission Date: 20180321
  Serious: Yes (Other)
  Sender: FDA-Public Use
  Company Number: JP-OTSUKA-011260

PATIENT
  Age: 62 Year
  Sex: Female
  Weight: 54 kg

DRUGS (6)
  1. ABILIFY [Suspect]
     Active Substance: ARIPIPRAZOLE
     Dosage: 24 MG, QD
     Route: 048
     Dates: start: 20100726, end: 20100803
  2. DANTRIUM [Concomitant]
     Active Substance: DANTROLENE SODIUM
     Indication: NEUROLEPTIC MALIGNANT SYNDROME
     Dosage: 50 MG, BID
     Route: 048
     Dates: start: 20100712, end: 20101025
  3. ABILIFY [Suspect]
     Active Substance: ARIPIPRAZOLE
     Indication: SCHIZOPHRENIA
     Dosage: 12 MG, QD
     Route: 048
     Dates: start: 20100702, end: 20100716
  4. ABILIFY [Suspect]
     Active Substance: ARIPIPRAZOLE
     Dosage: 18 MG, QD
     Route: 048
     Dates: start: 20100717, end: 20100725
  5. BROMOCRIPTINE MESYLATE [Concomitant]
     Active Substance: BROMOCRIPTINE MESYLATE
     Dosage: TABLET  PROSPELINE
     Dates: start: 20100712, end: 20100812
  6. PROSPELINE [Concomitant]
     Indication: NEUROLEPTIC MALIGNANT SYNDROME
     Dosage: 1.25 MG, BID
     Route: 048
     Dates: start: 20100712, end: 20100812

REACTIONS (1)
  - Hepatic function abnormal [Recovered/Resolved]

NARRATIVE: CASE EVENT DATE: 20100803
